FAERS Safety Report 24336109 (Version 1)
Quarter: 2024Q3

REPORT INFORMATION
  Report Type: Spontaneous
  Country: IN (occurrence: IN)
  Receive Date: 20240919
  Receipt Date: 20240919
  Transmission Date: 20241016
  Serious: Yes (Death)
  Sender: ROCHE
  Company Number: IN-ROCHE-10000051269

PATIENT
  Age: 54 Year
  Sex: Male

DRUGS (1)
  1. TECENTRIQ [Suspect]
     Active Substance: ATEZOLIZUMAB
     Indication: Hepatocellular carcinoma
     Route: 042
     Dates: start: 20240731

REACTIONS (7)
  - Off label use [Unknown]
  - Hypertension [Unknown]
  - Asthenia [Unknown]
  - Constipation [Unknown]
  - Decreased appetite [Unknown]
  - Cough [Unknown]
  - Death [Fatal]
